FAERS Safety Report 25355565 (Version 1)
Quarter: 2025Q2

REPORT INFORMATION
  Report Type: Report from Study
  Country: AU (occurrence: AU)
  Receive Date: 20250525
  Receipt Date: 20250525
  Transmission Date: 20250717
  Serious: Yes (Other)
  Sender: JOHNSON AND JOHNSON
  Company Number: AU-JNJFOC-20250403041

PATIENT
  Sex: Female

DRUGS (2)
  1. SIMPONI [Suspect]
     Active Substance: GOLIMUMAB
     Indication: Ankylosing spondylitis
     Dosage: RECENT DOSE ADMINISTERED 11-MAY-2025
     Route: 058
     Dates: start: 20250301
  2. SIMPONI [Suspect]
     Active Substance: GOLIMUMAB
     Dosage: MAINTENANCE DOSE START DATE 11-MAY-2025.
     Route: 058

REACTIONS (4)
  - Oophorectomy [Unknown]
  - Gastrointestinal organ contusion [Unknown]
  - COVID-19 [Unknown]
  - Illness [Unknown]
